FAERS Safety Report 9541747 (Version 1)
Quarter: 2013Q3

REPORT INFORMATION
  Report Type: Spontaneous
  Country: BR (occurrence: None)
  Receive Date: 20130918
  Receipt Date: 20130918
  Transmission Date: 20140515
  Serious: Yes (Hospitalization)
  Sender: FDA-Public Use
  Company Number: DSU-2013-04500

PATIENT
  Age: 70 Year
  Sex: Male

DRUGS (1)
  1. OLMETEC ANLO (OLMESARTAN MEDOXOMIL, AMLODIPINE BESILATE) (TABLET) (OLMESARTAN MEDOXOMIL, AMLODIPINE BESILATE) [Suspect]
     Indication: HYPERTENSION
     Route: 048
     Dates: start: 20130703

REACTIONS (1)
  - Cataract operation [None]
